FAERS Safety Report 7385310-0 (Version None)
Quarter: 2011Q1

REPORT INFORMATION
  Report Type: 
  Country: None (occurrence: None)
  Receive Date: 20110330
  Receipt Date: 20100823
  Transmission Date: 20110831
  Serious: No
  Sender: FDA-Public Use
  Company Number: US-MYLANLABS-2010S1011066

PATIENT
  Age: 68 Year
  Sex: Male

DRUGS (10)
  1. FOLIC ACID [Concomitant]
  2. TAMSULOSIN HCL [Concomitant]
  3. EMSAM [Suspect]
     Indication: DEPRESSION
     Dosage: QD
     Route: 062
     Dates: start: 20100608, end: 20100601
  4. RAMIPRIL [Concomitant]
  5. PLAVIX [Concomitant]
  6. FUROSEMIDE [Concomitant]
  7. VYTORIN [Concomitant]
  8. MULTIVITAMIN [Concomitant]
  9. ASPIRIN [Concomitant]
  10. AVODART [Concomitant]

REACTIONS (2)
  - OEDEMA PERIPHERAL [None]
  - ARTHRALGIA [None]
